FAERS Safety Report 4328874-3 (Version None)
Quarter: 2004Q1

REPORT INFORMATION
  Report Type: 
  Country: None (occurrence: None)
  Receive Date: 20040331
  Receipt Date: 20040325
  Transmission Date: 20041129
  Serious: Yes (Hospitalization)
  Sender: FDA-Public Use
  Company Number: 2003-BP-06997RO

PATIENT
  Age: 10 Month

DRUGS (1)
  1. DIGOXIN [Suspect]
     Indication: CARDIAC FAILURE CONGESTIVE
     Dosage: BID (SEE TEXT), PO
     Route: 048

REACTIONS (4)
  - CARDIAC FAILURE CONGESTIVE [None]
  - CARDIOACTIVE DRUG LEVEL BELOW THERAPEUTIC [None]
  - CONDITION AGGRAVATED [None]
  - PHARMACEUTICAL PRODUCT COMPLAINT [None]
